FAERS Safety Report 9405106 (Version 1)
Quarter: 2013Q3

REPORT INFORMATION
  Report Type: Spontaneous
  Country: US (occurrence: US)
  Receive Date: 20130717
  Receipt Date: 20130717
  Transmission Date: 20140515
  Serious: No
  Sender: FDA-Public Use
  Company Number: US-PFIZER INC-2013206576

PATIENT
  Age: 57 Year
  Sex: Female

DRUGS (9)
  1. XELJANZ [Suspect]
     Dosage: 5 MG, 2X/DAY
     Route: 048
  2. LEXAPRO [Concomitant]
     Dosage: 5 MG, UNK
     Route: 048
  3. PERCOCET [Concomitant]
     Dosage: OXYCODONE HYDROCHLORIDE 5 MG, PARACETAMOL 325 MG
     Route: 048
  4. VITAMIN B-12 [Concomitant]
     Dosage: 500 UG, UNK
     Route: 048
  5. FOLIC ACID [Concomitant]
     Dosage: 5 MG, UNK
     Route: 048
  6. CALCIUM [Concomitant]
     Dosage: 500 MG, UNK
     Route: 048
  7. MAGNESIUM [Concomitant]
     Dosage: 30 MG, UNK
     Route: 048
  8. GLUCOSAMINE [Concomitant]
     Dosage: 500 MG, UNK
     Route: 048
  9. CHONDROITIN [Concomitant]
     Dosage: 250 MG, UNK
     Route: 048

REACTIONS (1)
  - Fatigue [Unknown]
